FAERS Safety Report 17556520 (Version 5)
Quarter: 2020Q3

REPORT INFORMATION
  Report Type: Report from Study
  Country: SG (occurrence: SG)
  Receive Date: 20200318
  Receipt Date: 20200518
  Transmission Date: 20201105
  Serious: Yes (Hospitalization)
  Sender: FDA-Public Use
  Company Number: NVSC2020SG071559

PATIENT
  Age: 58 Year
  Sex: Female
  Weight: 42 kg

DRUGS (41)
  1. GLICLAZIDE [Concomitant]
     Active Substance: GLICLAZIDE
     Indication: DIABETES MELLITUS
     Dosage: UNK
     Route: 065
     Dates: start: 20200202, end: 20200317
  2. CANDESARTAN CILEXETIL. [Concomitant]
     Active Substance: CANDESARTAN CILEXETIL
     Indication: HYPERTENSION
     Dosage: 16 MG
     Route: 065
     Dates: start: 20200126, end: 20200319
  3. ATORVASTATIN [Concomitant]
     Active Substance: ATORVASTATIN
     Indication: HYPERLIPIDAEMIA
     Dosage: UNK
     Route: 065
     Dates: start: 20160101
  4. POTASSIUM CHLORIDE. [Concomitant]
     Active Substance: POTASSIUM CHLORIDE
     Indication: HYPOKALAEMIA
     Dosage: 10 MMOL
     Route: 065
     Dates: start: 20200306, end: 20200306
  5. TRAMADOL. [Concomitant]
     Active Substance: TRAMADOL
     Indication: PAIN
     Dosage: 50 MG
     Route: 065
     Dates: start: 20191128, end: 20200311
  6. CALCIUM D [Concomitant]
     Active Substance: CALCIUM\VITAMIN D
     Indication: HYPOKALAEMIA
     Dosage: 200 U
     Route: 065
     Dates: start: 20200221, end: 20200305
  7. DEXTROSE. [Concomitant]
     Active Substance: DEXTROSE
     Indication: DIARRHOEA
     Dosage: 500 ML
     Route: 065
     Dates: start: 20200310, end: 20200331
  8. CANAKINUMAB. [Suspect]
     Active Substance: CANAKINUMAB
     Indication: TRIPLE NEGATIVE BREAST CANCER
     Dosage: 600 MG, Q2MO
     Route: 058
     Dates: start: 20191202
  9. LAG525 [Suspect]
     Active Substance: IERAMILIMAB
     Indication: TRIPLE NEGATIVE BREAST CANCER
     Dosage: 600 MG, Q4W
     Route: 042
     Dates: start: 20191202
  10. PARACETAMOL [Concomitant]
     Active Substance: ACETAMINOPHEN
     Indication: HIP FRACTURE
  11. METFORMIN HCL [Concomitant]
     Active Substance: METFORMIN HYDROCHLORIDE
     Indication: DIABETES MELLITUS
     Dosage: 1 G
     Route: 065
     Dates: start: 20010101, end: 20200318
  12. CALCIUM D [Concomitant]
     Active Substance: CALCIUM\VITAMIN D
     Dosage: UNK
     Route: 065
     Dates: start: 20200306, end: 20200306
  13. CALCIUM GLUCONATE. [Concomitant]
     Active Substance: CALCIUM GLUCONATE
     Indication: HYPOKALAEMIA
     Dosage: UNK
     Route: 065
     Dates: start: 20200306, end: 20200306
  14. PDR001 [Suspect]
     Active Substance: SPARTALIZUMAB
     Indication: TRIPLE NEGATIVE BREAST CANCER
     Dosage: 400 MG, Q4W
     Route: 042
     Dates: start: 20191202
  15. PARACETAMOL [Concomitant]
     Active Substance: ACETAMINOPHEN
     Indication: PYREXIA
     Dosage: UNK
     Route: 065
     Dates: start: 20190906, end: 20200311
  16. ETORICOXIB. [Concomitant]
     Active Substance: ETORICOXIB
     Indication: HIP FRACTURE
     Dosage: UNK
     Route: 065
     Dates: start: 20191230
  17. METOCLOPRAMIDE HCL [Concomitant]
     Active Substance: METOCLOPRAMIDE HYDROCHLORIDE
     Indication: VOMITING
  18. CALCIUM D [Concomitant]
     Active Substance: CALCIUM\VITAMIN D
     Indication: GENERAL PHYSICAL CONDITION
     Dosage: 450 MG
     Route: 065
     Dates: start: 20200221, end: 20200305
  19. DEXTROSE. [Concomitant]
     Active Substance: DEXTROSE
     Indication: DECREASED APPETITE
     Dosage: 500 ML
     Route: 065
     Dates: start: 20200310, end: 20200310
  20. MAGNESIUM [Concomitant]
     Active Substance: MAGNESIUM
     Indication: HYPOMAGNESAEMIA
     Dosage: UNK
     Route: 065
     Dates: start: 20200306, end: 20200313
  21. VITAMIN B12 [Concomitant]
     Active Substance: CYANOCOBALAMIN
     Dosage: 500 MCG
     Route: 065
     Dates: start: 20200315, end: 20200326
  22. VITAMIN B12 [Concomitant]
     Active Substance: CYANOCOBALAMIN
     Indication: GENERAL PHYSICAL CONDITION
     Dosage: UNK
     Route: 065
     Dates: start: 20200311, end: 20200313
  23. ISOPHANE INSULIN [Concomitant]
     Active Substance: INSULIN NOS
     Indication: DIABETES MELLITUS
     Dosage: UNK
     Route: 065
     Dates: start: 20010101
  24. TRAMADOL. [Concomitant]
     Active Substance: TRAMADOL
     Indication: HIP FRACTURE
  25. METOCLOPRAMIDE HCL [Concomitant]
     Active Substance: METOCLOPRAMIDE HYDROCHLORIDE
     Indication: NAUSEA
     Dosage: 10 MG
     Route: 065
     Dates: start: 20191003, end: 20200311
  26. DENOSUMAB [Concomitant]
     Active Substance: DENOSUMAB
     Indication: BONE LOSS
     Dosage: 120 MG
     Route: 065
     Dates: start: 20200129
  27. HARTMANN^S SOLUTION [Concomitant]
     Active Substance: CALCIUM CHLORIDE\POTASSIUM CHLORIDE\SODIUM CHLORIDE\SODIUM LACTATE
     Indication: DECREASED APPETITE
     Dosage: UNK
     Route: 065
     Dates: start: 20200312, end: 20200312
  28. OMEPRAZOLE. [Concomitant]
     Active Substance: OMEPRAZOLE
     Indication: PROPHYLAXIS
     Dosage: UNK
     Route: 065
     Dates: start: 20191219, end: 20200312
  29. ETORICOXIB. [Concomitant]
     Active Substance: ETORICOXIB
     Indication: BACK PAIN
  30. ACTRAPID [Concomitant]
     Active Substance: INSULIN HUMAN
     Indication: DIABETES MELLITUS
     Dosage: UNK
     Route: 065
     Dates: start: 20200311, end: 20200326
  31. SODIUM CHLORIDE. [Concomitant]
     Active Substance: SODIUM CHLORIDE
     Indication: HYPONATRAEMIA
     Dosage: UNK
     Route: 065
     Dates: start: 20200310, end: 20200331
  32. SODIUM CHLORIDE. [Concomitant]
     Active Substance: SODIUM CHLORIDE
     Dosage: 0.9 %
     Route: 065
     Dates: start: 20200311, end: 20200311
  33. VITAMIN B12 [Concomitant]
     Active Substance: CYANOCOBALAMIN
     Indication: GENERAL PHYSICAL CONDITION
     Dosage: 1 G
     Route: 065
     Dates: start: 20190311, end: 20190313
  34. FOLIC ACID. [Concomitant]
     Active Substance: FOLIC ACID
     Indication: GENERAL PHYSICAL CONDITION
     Dosage: 5 MG
     Route: 065
     Dates: start: 20200312, end: 20200326
  35. OMEPRAZOLE. [Concomitant]
     Active Substance: OMEPRAZOLE
     Dosage: 40 MG
     Route: 065
     Dates: start: 20200312, end: 20200331
  36. TEARS NATURALE II [Concomitant]
     Indication: DRY EYE
     Dosage: UNK
     Route: 065
     Dates: start: 20200113, end: 20200311
  37. CALTRATE [Concomitant]
     Active Substance: CALCIUM CARBONATE
     Indication: HYPOCALCAEMIA
     Dosage: UNK
     Route: 065
     Dates: start: 20200306
  38. KETOPROFEN. [Concomitant]
     Active Substance: KETOPROFEN
     Indication: BACK PAIN
     Dosage: UNK
     Route: 065
     Dates: start: 20200121, end: 20200311
  39. POTASSIUM CHLORIDE. [Concomitant]
     Active Substance: POTASSIUM CHLORIDE
     Indication: PROPHYLAXIS
     Dosage: UNK
     Route: 065
     Dates: start: 20200306, end: 20200309
  40. POTASSIUM PHOSPHATE [Concomitant]
     Active Substance: POTASSIUM PHOSPHATE
     Indication: HYPOKALAEMIA
     Dosage: 100 ML
     Route: 065
     Dates: start: 20200306, end: 20200306
  41. OMEPRAZOLE. [Concomitant]
     Active Substance: OMEPRAZOLE
     Dosage: UNK
     Route: 065
     Dates: start: 20200313, end: 20200327

REACTIONS (2)
  - Delirium [Recovered/Resolved with Sequelae]
  - Diarrhoea [Recovered/Resolved with Sequelae]

NARRATIVE: CASE EVENT DATE: 20200310
